FAERS Safety Report 17141265 (Version 4)
Quarter: 2020Q1

REPORT INFORMATION
  Report Type: Spontaneous
  Country: US (occurrence: US)
  Receive Date: 20191211
  Receipt Date: 20200227
  Transmission Date: 20200409
  Serious: Yes (Other)
  Sender: FDA-Public Use
  Company Number: US-SA-2019SA340403

PATIENT
  Age: 73 Year
  Sex: Female

DRUGS (3)
  1. LANTUS SOLOSTAR [Suspect]
     Active Substance: INSULIN GLARGINE
     Dosage: 10 IU, BID
     Route: 065
  2. LANTUS SOLOSTAR [Suspect]
     Active Substance: INSULIN GLARGINE
     Dosage: 16 U, HS
     Route: 065
  3. LANTUS SOLOSTAR [Suspect]
     Active Substance: INSULIN GLARGINE
     Indication: DIABETES MELLITUS
     Dosage: 20 IU, HS
     Route: 058

REACTIONS (14)
  - Nasal inflammation [Unknown]
  - Product prescribing error [Unknown]
  - Vomiting [Unknown]
  - Pain [Not Recovered/Not Resolved]
  - Pain in jaw [Not Recovered/Not Resolved]
  - Toothache [Not Recovered/Not Resolved]
  - Stomatitis [Unknown]
  - Blood glucose fluctuation [Unknown]
  - Blood glucose decreased [Unknown]
  - Headache [Unknown]
  - Diet noncompliance [Not Recovered/Not Resolved]
  - Intentional product use issue [Unknown]
  - Dementia [Not Recovered/Not Resolved]
  - Infection [Unknown]

NARRATIVE: CASE EVENT DATE: 20190904
